FAERS Safety Report 6850674-0 (Version None)
Quarter: 2010Q3

REPORT INFORMATION
  Report Type: 
  Country: None (occurrence: None)
  Receive Date: 20100716
  Receipt Date: 20071018
  Transmission Date: 20110219
  Serious: No
  Sender: FDA-Public Use
  Company Number: US-PFIZER INC-2007089515

PATIENT
  Sex: Female
  Weight: 44.1 kg

DRUGS (7)
  1. CHANTIX [Suspect]
     Indication: SMOKING CESSATION THERAPY
     Dates: start: 20070101
  2. ANTIHYPERTENSIVES [Concomitant]
  3. DRUG, UNSPECIFIED [Concomitant]
  4. CYMBALTA [Concomitant]
  5. ANTIDEPRESSANTS [Concomitant]
  6. VARIOUS ALIMENTARY TRACT + METABOLISM PRODUCT [Concomitant]
  7. APPETITE STIMULANTS [Concomitant]

REACTIONS (3)
  - FEELING ABNORMAL [None]
  - GAIT DISTURBANCE [None]
  - VOMITING [None]
